FAERS Safety Report 10010682 (Version 1)
Quarter: 2014Q1

REPORT INFORMATION
  Report Type: Spontaneous
  Country: US (occurrence: US)
  Receive Date: 20140314
  Receipt Date: 20140314
  Transmission Date: 20141002
  Serious: Yes (Other)
  Sender: FDA-Public Use
  Company Number: US-RANBAXY-2014US-78922

PATIENT
  Age: 53 Year
  Sex: Male

DRUGS (2)
  1. AMOXICILLIN/CLAVULANIC ACID [Suspect]
     Indication: TOOTH ABSCESS
     Dosage: 500/125 MG TWICE DAILY
     Route: 065
  2. WARFARIN [Interacting]
     Indication: ANTICOAGULANT THERAPY
     Route: 065

REACTIONS (3)
  - Drug interaction [Recovered/Resolved]
  - Toxicity to various agents [Recovered/Resolved]
  - Haemorrhage [Recovered/Resolved]
